FAERS Safety Report 4435262-8 (Version None)
Quarter: 2004Q3

REPORT INFORMATION
  Report Type: 
  Country: None (occurrence: None)
  Receive Date: 20040826
  Receipt Date: 20040811
  Transmission Date: 20050211
  Serious: Yes (Hospitalization)
  Sender: FDA-Public Use
  Company Number: 04P-167-0270496-00

PATIENT
  Age: 57 Year
  Sex: Female
  Weight: 70 kg

DRUGS (7)
  1. HUMIRA [Suspect]
     Indication: RHEUMATOID ARTHRITIS
     Dosage: 40 MG, 1 IN 2 WK, SUBCUTANEOUS
     Route: 058
     Dates: start: 20031105, end: 20040101
  2. PREDNISOLONE [Concomitant]
  3. ACETAMINOPHEN W/ CODEINE [Concomitant]
  4. GAVISCON [Concomitant]
  5. CALCIUM CARBONATE [Concomitant]
  6. BENDROFLUMETHIAZIDE [Concomitant]
  7. RABEPRAZOLE SODIUM [Concomitant]

REACTIONS (1)
  - JOINT LOCK [None]
